FAERS Safety Report 9813124 (Version 2)
Quarter: 2014Q1

REPORT INFORMATION
  Report Type: Spontaneous
  Country: GB (occurrence: GB)
  Receive Date: 20140113
  Receipt Date: 20140113
  Transmission Date: 20141002
  Serious: Yes (Hospitalization, Other)
  Sender: FDA-Public Use
  Company Number: GB-ELI_LILLY_AND_COMPANY-GB94021459A

PATIENT
  Age: 74 Year
  Sex: Female

DRUGS (2)
  1. PROZAC [Suspect]
     Indication: DEPRESSION
     Dosage: 20 MG, DAILY (1/D)
     Route: 048
     Dates: start: 199303, end: 19930621
  2. AMITRIPTYLINE [Concomitant]
     Dosage: UNK, UNKNOWN
     Route: 048
     Dates: end: 19930601

REACTIONS (4)
  - Ventricular tachycardia [Unknown]
  - Torsade de pointes [Unknown]
  - Hypotension [Unknown]
  - Syncope [Unknown]
